FAERS Safety Report 14703378 (Version 1)
Quarter: 2018Q2

REPORT INFORMATION
  Report Type: Spontaneous
  Country: DE (occurrence: DE)
  Receive Date: 20180402
  Receipt Date: 20180402
  Transmission Date: 20180711
  Serious: Yes (Other)
  Sender: FDA-Public Use
  Company Number: DE-SUN PHARMACEUTICAL INDUSTRIES LTD-2018R1-168815

PATIENT
  Age: 20 Year
  Sex: Female
  Weight: 73 kg

DRUGS (2)
  1. VENLAFAXINE [Suspect]
     Active Substance: VENLAFAXINE HYDROCHLORIDE
     Indication: PRODUCT USED FOR UNKNOWN INDICATION
     Dosage: VENLAFAXIN 75 MG 4-0-0
     Route: 065
     Dates: end: 201712
  2. ORKAMBI [Interacting]
     Active Substance: IVACAFTOR\LUMACAFTOR
     Indication: CYSTIC FIBROSIS
     Dosage: 2-0-2
     Route: 048
     Dates: start: 20171010, end: 20180122

REACTIONS (12)
  - Impaired driving ability [Not Recovered/Not Resolved]
  - Vomiting [Recovered/Resolved]
  - Mood swings [Recovered/Resolved]
  - Disorientation [Recovered/Resolved]
  - Drug effect decreased [Unknown]
  - Depression [Recovered/Resolved]
  - Drug interaction [Unknown]
  - Chest discomfort [Recovered/Resolved]
  - Nausea [Recovered/Resolved]
  - Fatigue [Recovering/Resolving]
  - Dizziness [Recovering/Resolving]
  - Confusional state [Recovered/Resolved]

NARRATIVE: CASE EVENT DATE: 20171014
